FAERS Safety Report 10740923 (Version 3)
Quarter: 2015Q1

REPORT INFORMATION
  Report Type: Spontaneous
  Country: US (occurrence: US)
  Receive Date: 20150127
  Receipt Date: 20150313
  Transmission Date: 20150721
  Serious: Yes (Other)
  Sender: FDA-Public Use
  Company Number: US-BEH-2014046201

PATIENT
  Age: 52 Year
  Sex: Female
  Weight: 109 kg

DRUGS (25)
  1. HIZENTRA [Suspect]
     Active Substance: HUMAN IMMUNOGLOBULIN G
     Indication: IMMUNODEFICIENCY COMMON VARIABLE
     Route: 058
     Dates: start: 20141002, end: 20141023
  2. HYDROCHLOROTHIAZIDE. [Concomitant]
     Active Substance: HYDROCHLOROTHIAZIDE
     Dosage: MORNING
  3. BUDESONIDE. [Concomitant]
     Active Substance: BUDESONIDE
  4. HUMALOG [Concomitant]
     Active Substance: INSULIN LISPRO
     Dosage: WITH MEALS
  5. FLONASE [Concomitant]
     Active Substance: FLUTICASONE PROPIONATE
  6. LANTUS SOLOSTAR INSULIN [Concomitant]
     Dosage: MORNING
  7. HIZENTRA [Suspect]
     Active Substance: HUMAN IMMUNOGLOBULIN G
     Dosage: 5 AND 10 ML DAILY INFUSIONS
  8. NORCO [Concomitant]
     Active Substance: ACETAMINOPHEN\HYDROCODONE BITARTRATE
  9. ALLEGRA-D [Concomitant]
     Active Substance: FEXOFENADINE\PSEUDOEPHEDRINE
  10. LANSOPRAZOLE. [Concomitant]
     Active Substance: LANSOPRAZOLE
     Dosage: MORNING
     Route: 048
  11. NYSTOP [Concomitant]
     Active Substance: NYSTATIN
  12. LEVOTHYROXINE [Concomitant]
     Active Substance: LEVOTHYROXINE
     Dosage: MORNING
  13. LEVOTHYROXINE [Concomitant]
     Active Substance: LEVOTHYROXINE
     Dosage: 1/2 OF 0.075 MG ON FRIDAYS IN MORNING
  14. VITAMIN B12 [Concomitant]
     Active Substance: CYANOCOBALAMIN
  15. VITAMIN D3 [Concomitant]
     Active Substance: CHOLECALCIFEROL
     Dosage: MORNING AND NIGHT
  16. COLACE [Concomitant]
     Active Substance: DOCUSATE SODIUM
     Dosage: MORNING AND NIGHT
  17. GABAPENTIN. [Concomitant]
     Active Substance: GABAPENTIN
     Route: 048
  18. METFORMIN [Concomitant]
     Active Substance: METFORMIN HYDROCHLORIDE
  19. FOSINOPRIL [Concomitant]
     Active Substance: FOSINOPRIL
     Dosage: MORNING
  20. LOVASTATIN. [Concomitant]
     Active Substance: LOVASTATIN
     Dosage: NIGHT
  21. MUPIROCIN. [Concomitant]
     Active Substance: MUPIROCIN
  22. METFORMIN [Concomitant]
     Active Substance: METFORMIN HYDROCHLORIDE
  23. TIZANIDINE (TIZANIDINE) [Concomitant]
     Active Substance: TIZANIDINE
     Dosage: 4 MG THREE TIMES DAILY
     Route: 048
  24. NABUMETONE. [Concomitant]
     Active Substance: NABUMETONE
  25. EPIPEN [Concomitant]
     Active Substance: EPINEPHRINE

REACTIONS (3)
  - Embolism [Recovered/Resolved]
  - Peripheral swelling [Recovered/Resolved]
  - Fatigue [Recovered/Resolved]

NARRATIVE: CASE EVENT DATE: 20141023
